FAERS Safety Report 24914363 (Version 1)
Quarter: 2025Q1

REPORT INFORMATION
  Report Type: Spontaneous
  Country: BG (occurrence: BG)
  Receive Date: 20250203
  Receipt Date: 20250203
  Transmission Date: 20250409
  Serious: Yes (Hospitalization)
  Sender: INVENTIA HEALTHCARE LTD
  Company Number: BG-IHL-000643

PATIENT
  Age: 88 Year
  Sex: Male

DRUGS (2)
  1. TAMSULOSIN HYDROCHLORIDE [Suspect]
     Active Substance: TAMSULOSIN HYDROCHLORIDE
     Indication: Product used for unknown indication
     Route: 065
  2. TELMISARTAN [Suspect]
     Active Substance: TELMISARTAN
     Indication: Hypertension
     Route: 065

REACTIONS (5)
  - Keratoacanthoma [Recovered/Resolved]
  - Actinic keratosis [Unknown]
  - Dermal cyst [Recovered/Resolved]
  - Product contamination [Unknown]
  - Multiple drug therapy [Unknown]
